FAERS Safety Report 11655090 (Version 1)
Quarter: 2015Q4

REPORT INFORMATION
  Report Type: Spontaneous
  Country: US (occurrence: US)
  Receive Date: 20151023
  Receipt Date: 20151023
  Transmission Date: 20160304
  Serious: Yes (Other)
  Sender: FDA-Public Use
  Company Number: US-PFIZER INC-2015350137

PATIENT
  Age: 64 Year
  Sex: Female

DRUGS (6)
  1. LISINOPRIL. [Concomitant]
     Active Substance: LISINOPRIL
     Indication: HYPERTENSION
     Dosage: 10MG ONE TABLET, DAILY
     Route: 048
  2. NEURONTIN [Suspect]
     Active Substance: GABAPENTIN
     Indication: SEIZURE
     Dosage: 300 MG, 3X/DAY
     Route: 048
  3. VITAMIN D3 [Concomitant]
     Active Substance: CHOLECALCIFEROL
     Indication: VITAMIN SUPPLEMENTATION
     Dosage: 1000 ONE TABLET, DAILY
     Route: 048
  4. SIMVASTATIN. [Concomitant]
     Active Substance: SIMVASTATIN
     Indication: BLOOD CHOLESTEROL INCREASED
     Dosage: 10MG ONE TABLET, DAILY
     Route: 048
  5. ECOTRIN [Concomitant]
     Active Substance: ASPIRIN
     Indication: BLOOD VISCOSITY INCREASED
     Dosage: 81MG ONE TABLET, DAILY
     Route: 048
  6. CALCIUM [Concomitant]
     Active Substance: CALCIUM
     Indication: ROUTINE HEALTH MAINTENANCE
     Dosage: 600MG THREE TABLETS, 1X/DAY
     Route: 048

REACTIONS (5)
  - Disease recurrence [Unknown]
  - Dysstasia [Unknown]
  - Sciatica [Unknown]
  - Breast cancer [Recovered/Resolved]
  - Alopecia [Unknown]

NARRATIVE: CASE EVENT DATE: 200711
